FAERS Safety Report 19682272 (Version 2)
Quarter: 2021Q3

REPORT INFORMATION
  Report Type: Report from Study
  Country: None (occurrence: DE)
  Receive Date: 20210811
  Receipt Date: 20210816
  Transmission Date: 20211014
  Serious: Yes (Hospitalization)
  Sender: FDA-Public Use
  Company Number: DE-ABBVIE-21K-062-4029577-00

PATIENT
  Sex: Male

DRUGS (2)
  1. DUODOPA [Suspect]
     Active Substance: CARBIDOPA\LEVODOPA
     Indication: PARKINSON^S DISEASE
     Dosage: MD 8 ML, CRD 2.5 ML/H, ED 1.5 ML
     Route: 050
     Dates: start: 20210722, end: 2021
  2. DUODOPA [Suspect]
     Active Substance: CARBIDOPA\LEVODOPA
     Dosage: MD 9 ML, CRD 4.2 ML/H, ED 2 ML
     Route: 050
     Dates: start: 2021

REACTIONS (3)
  - On and off phenomenon [Not Recovered/Not Resolved]
  - Device placement issue [Unknown]
  - Mobility decreased [Not Recovered/Not Resolved]
